FAERS Safety Report 22871144 (Version 4)
Quarter: 2023Q4

REPORT INFORMATION
  Report Type: Spontaneous
  Country: CA (occurrence: CA)
  Receive Date: 20230828
  Receipt Date: 20231011
  Transmission Date: 20240110
  Serious: Yes (Hospitalization, Other)
  Sender: FDA-Public Use
  Company Number: CA-CELLTRION INC.-2023CA016585

PATIENT

DRUGS (7)
  1. INFLECTRA [Suspect]
     Active Substance: INFLIXIMAB-DYYB
     Indication: Colitis ulcerative
     Dosage: 300 MG, WEEKS 0, 2, 6 AND EVERY 8 WEEKS
     Route: 042
     Dates: start: 20230811
  2. INFLECTRA [Suspect]
     Active Substance: INFLIXIMAB-DYYB
     Dosage: 600 MG, ADDITIONAL DOSE (HOSPITAL INFUSION)
     Route: 042
     Dates: start: 20230815, end: 20230815
  3. METHYLPREDNISOLONE [Concomitant]
     Active Substance: METHYLPREDNISOLONE
     Dosage: UNK
     Route: 042
  4. PREDNISONE [Concomitant]
     Active Substance: PREDNISONE
     Dosage: UNK
     Route: 048
  5. VALGANCICLOVIR [Concomitant]
     Active Substance: VALGANCICLOVIR
     Dosage: UNK
  6. MORPHINE [Concomitant]
     Active Substance: MORPHINE
     Dosage: UNK
  7. SEPTRA [Concomitant]
     Active Substance: SULFAMETHOXAZOLE\TRIMETHOPRIM
     Dosage: UNK

REACTIONS (5)
  - Condition aggravated [Not Recovered/Not Resolved]
  - Cytomegalovirus infection [Unknown]
  - Therapeutic product effect incomplete [Unknown]
  - Hepatitis A [Unknown]
  - C-reactive protein increased [Unknown]

NARRATIVE: CASE EVENT DATE: 20230801
